FAERS Safety Report 5390457-4 (Version None)
Quarter: 2007Q3

REPORT INFORMATION
  Report Type: 
  Country: None (occurrence: None)
  Receive Date: 20070712
  Receipt Date: 20070621
  Transmission Date: 20080115
  Serious: Yes (Hospitalization)
  Sender: FDA-Public Use
  Company Number: 6034280

PATIENT
  Age: 76 Year
  Sex: Female

DRUGS (13)
  1. GLUCOPHAGE [Suspect]
     Indication: DIABETES MELLITUS
     Dosage: 2 GM (1 GM,2 IN 1 D),ORAL
     Route: 048
     Dates: end: 20070224
  2. HYTACAND(TABLET) (HYDROCHLOROTHIAZIDE, CANDESARTAN CILEXETIL) [Suspect]
     Indication: DRUG USE FOR UNKNOWN INDICATION
     Dosage: 16 MG (16 MG,1 IN 1 D),ORAL
     Route: 048
     Dates: end: 20070223
  3. FUROSEMIDE [Suspect]
     Indication: DRUG USE FOR UNKNOWN INDICATION
     Dosage: 40 MG (40 MG,1 IN 1 D),ORAL
     Route: 048
     Dates: end: 20070224
  4. ORBENINE (POWDER FOR SOLUTION FOR INFUSION) (CLOXACILLIN SODIUM) [Suspect]
     Indication: SEPSIS
     Dosage: 6 GM (1,5 GM,4 IN 1 D),INTRAVENOUS (NOT OTHERWISE SPECIFIED)
     Route: 042
     Dates: start: 20070212, end: 20070223
  5. FORLAX (MACROGOL) [Concomitant]
  6. PREVISCAN (TABLET) (PENTOXIFYLLINE) [Concomitant]
  7. ZOLOFT [Concomitant]
  8. POTASSIUM CHLORIDE [Concomitant]
  9. NEXIUM [Concomitant]
  10. AMLODIPINE BESYLATE [Concomitant]
  11. NEULEPTIL (PERICIAZINE) [Concomitant]
  12. GENTAMYCINE (GENTAMICIN) [Concomitant]
  13. TRAMADOL HCL [Concomitant]

REACTIONS (4)
  - ANURIA [None]
  - LEUKOCYTURIA [None]
  - RENAL FAILURE ACUTE [None]
  - STAPHYLOCOCCAL SEPSIS [None]
